FAERS Safety Report 5938259-1 (Version None)
Quarter: 2008Q4

REPORT INFORMATION
  Report Type: 
  Country: None (occurrence: None)
  Receive Date: 20081031
  Receipt Date: 20081017
  Transmission Date: 20090506
  Serious: Yes (Hospitalization, Other)
  Sender: FDA-Public Use
  Company Number: ES-GENENTECH-270538

PATIENT
  Sex: Male

DRUGS (5)
  1. BEVACIZUMAB [Suspect]
     Indication: COLORECTAL CANCER METASTATIC
     Dosage: 480 MG, Q3W
     Route: 042
     Dates: start: 20070412
  2. CAPECITABINE [Suspect]
     Indication: COLORECTAL CANCER METASTATIC
     Dosage: 3600 MG, D1-14/Q3W
     Route: 048
     Dates: start: 20070412
  3. CAPECITABINE [Suspect]
     Dosage: 2600 MG, D1-14/Q3W
     Route: 048
     Dates: start: 20070605
  4. OXALIPLATIN [Suspect]
     Indication: COLORECTAL CANCER METASTATIC
     Dosage: 223 MG, Q3W
     Route: 042
     Dates: start: 20070412
  5. UNSPECIFIED CONCOMITANT DRUGS [Concomitant]
     Indication: PREMEDICATION

REACTIONS (2)
  - ENTERITIS [None]
  - PYREXIA [None]
